FAERS Safety Report 6045178-1 (Version None)
Quarter: 2009Q1

REPORT INFORMATION
  Report Type: 
  Country: None (occurrence: None)
  Receive Date: 20090121
  Receipt Date: 20090108
  Transmission Date: 20090719
  Serious: Yes (Other)
  Sender: FDA-Public Use
  Company Number: PHHY2008GB29958

PATIENT
  Sex: Male

DRUGS (2)
  1. CLOZARIL [Suspect]
     Indication: SCHIZOPHRENIA
     Dosage: 100 MG AM, 400 MG PM
     Route: 048
     Dates: start: 20071127
  2. CLOZARIL [Suspect]
     Dosage: 500 MG/DAY
     Route: 048
     Dates: start: 20081114

REACTIONS (7)
  - CONFUSIONAL STATE [None]
  - DIZZINESS [None]
  - DYSPNOEA [None]
  - HEART RATE INCREASED [None]
  - INCORRECT DOSE ADMINISTERED [None]
  - PANIC ATTACK [None]
  - TREATMENT NONCOMPLIANCE [None]
